FAERS Safety Report 23716862 (Version 3)
Quarter: 2024Q2

REPORT INFORMATION
  Report Type: Spontaneous
  Country: US (occurrence: US)
  Receive Date: 20240408
  Receipt Date: 20240621
  Transmission Date: 20240716
  Serious: Yes (Hospitalization, Other)
  Sender: FDA-Public Use
  Company Number: US-BRISTOL-MYERS SQUIBB COMPANY-2024-054080

PATIENT
  Age: 82 Year
  Sex: Female

DRUGS (1)
  1. LENALIDOMIDE [Suspect]
     Active Substance: LENALIDOMIDE
     Indication: Plasma cell myeloma in remission
     Route: 048
     Dates: end: 202402

REACTIONS (6)
  - Fall [Recovering/Resolving]
  - Fracture [Unknown]
  - Inability to afford medication [Unknown]
  - Therapy interrupted [Unknown]
  - Spinal fracture [Recovered/Resolved]
  - Insurance issue [Unknown]
